FAERS Safety Report 9157838 (Version 1)
Quarter: 2013Q1

REPORT INFORMATION
  Report Type: Spontaneous
  Country: NL (occurrence: None)
  Receive Date: 20130212
  Receipt Date: 20130212
  Transmission Date: 20140127
  Serious: Yes (Hospitalization)
  Sender: FDA-Public Use
  Company Number: VAL_00744_2012

PATIENT
  Sex: Female

DRUGS (2)
  1. ROCALTROL (ROCALTROL-CALCITROL) (NOT SPECIFIED) [Suspect]
     Indication: HYPOPARATHYROIDISM
     Dosage: (0.5 UG 8X/DAY ORAL)
     Route: 048
     Dates: start: 201106
  2. VENTOLIN /00139502/ (UNKNOWN) [Concomitant]

REACTIONS (8)
  - Diarrhoea [None]
  - Abdominal distension [None]
  - Headache [None]
  - Thirst [None]
  - Disturbance in attention [None]
  - Dreamy state [None]
  - Fatigue [None]
  - Adrenal disorder [None]
